FAERS Safety Report 23717660 (Version 1)
Quarter: 2024Q2

REPORT INFORMATION
  Report Type: Spontaneous
  Country: FR (occurrence: FR)
  Receive Date: 20240408
  Receipt Date: 20240408
  Transmission Date: 20240716
  Serious: Yes (Life-Threatening, Hospitalization, Other)
  Sender: FDA-Public Use
  Company Number: None

PATIENT
  Age: 80 Year
  Sex: Male

DRUGS (12)
  1. OLANZAPINE [Suspect]
     Active Substance: OLANZAPINE
     Dosage: 2.5 MILLIGRAMS EVERY MORNING AND 5 MILLIGRAMS EVERY EVENING?DAILY DOSE: 7.5 MILLIGRAM
     Route: 048
  2. ZUCLOPENTHIXOL [Suspect]
     Active Substance: ZUCLOPENTHIXOL
     Dosage: 1 AMPOULE EVERY MORNING ?DAILY DOSE: 1 DOSAGE FORM
     Route: 048
  3. ALPRAZOLAM [Concomitant]
     Active Substance: ALPRAZOLAM
     Dosage: EVENING?DAILY DOSE: 1 MILLIGRAM
     Route: 048
  4. ALPRAZOLAM [Concomitant]
     Active Substance: ALPRAZOLAM
     Dosage: MORNING?DAILY DOSE: 0.5 MILLIGRAM
     Route: 048
  5. TROPATEPINE HYDROCHLORIDE [Concomitant]
     Active Substance: TROPATEPINE HYDROCHLORIDE
     Dosage: DAILY DOSE: 20 MILLIGRAM
     Route: 048
  6. LACTULOSE [Concomitant]
     Active Substance: LACTULOSE
     Route: 048
  7. OMEPRAZOLE [Concomitant]
     Active Substance: OMEPRAZOLE
     Dosage: DAILY DOSE: 20 MILLIGRAM
     Route: 048
  8. APIXABAN [Concomitant]
     Active Substance: APIXABAN
     Dosage: DAILY DOSE: 10 MILLIGRAM
     Route: 048
  9. ALFUZOSIN HYDROCHLORIDE [Concomitant]
     Active Substance: ALFUZOSIN HYDROCHLORIDE
     Dosage: DAILY DOSE: 10 MILLIGRAM
     Route: 048
  10. X-Prep [Concomitant]
     Dosage: DAILY DOSE: 5 GRAM
     Route: 048
  11. ANETHOLTRITHION [Concomitant]
     Active Substance: ANETHOLTRITHION
     Dosage: DAILY DOSE: 150 MILLIGRAM
     Route: 048
  12. NORMACOL [Concomitant]
     Active Substance: HERBALS\KARAYA GUM
     Route: 054

REACTIONS (6)
  - Intestinal obstruction [Unknown]
  - Faecal vomiting [Unknown]
  - Pneumonia aspiration [Unknown]
  - Pyelitis [Unknown]
  - Hyperlactacidaemia [Recovering/Resolving]
  - Hypotension [Recovering/Resolving]

NARRATIVE: CASE EVENT DATE: 20240312
